FAERS Safety Report 16265349 (Version 4)
Quarter: 2019Q2

REPORT INFORMATION
  Report Type: Spontaneous
  Country: US (occurrence: US)
  Receive Date: 20190502
  Receipt Date: 20190509
  Transmission Date: 20190711
  Serious: Yes (Death, Hospitalization)
  Sender: FDA-Public Use
  Company Number: US-CELGENEUS-USA-20190411392

PATIENT
  Age: 79 Year
  Sex: Male

DRUGS (1)
  1. REVLIMID [Suspect]
     Active Substance: LENALIDOMIDE
     Indication: PLASMA CELL MYELOMA
     Dosage: 25 MILLIGRAM
     Route: 048
     Dates: start: 20190402, end: 20190428

REACTIONS (3)
  - Cerebrovascular accident [Fatal]
  - Thrombosis [Fatal]
  - Death [Fatal]

NARRATIVE: CASE EVENT DATE: 20190428
